FAERS Safety Report 15722379 (Version 1)
Quarter: 2018Q4

REPORT INFORMATION
  Report Type: Spontaneous
  Country: PL (occurrence: PL)
  Receive Date: 20181214
  Receipt Date: 20181214
  Transmission Date: 20190205
  Serious: Yes (Other)
  Sender: FDA-Public Use
  Company Number: PL-HORIZON-PRE-0554-2018

PATIENT
  Age: 4 Year
  Sex: Female

DRUGS (5)
  1. TETRACOSACTIDE [Concomitant]
     Active Substance: COSYNTROPIN
     Indication: ATAXIA
  2. AZATHIOPRINE. [Concomitant]
     Active Substance: AZATHIOPRINE
     Indication: AUTOIMMUNE HEPATITIS
  3. PREDNISONE. [Suspect]
     Active Substance: PREDNISONE
     Indication: AUTOIMMUNE HEPATITIS
  4. DEFLAZACORT [Suspect]
     Active Substance: DEFLAZACORT
     Indication: AUTOIMMUNE HEPATITIS
  5. METHYLPREDNISOLONE. [Suspect]
     Active Substance: METHYLPREDNISOLONE
     Indication: ATAXIA

REACTIONS (2)
  - Drug dependence [Unknown]
  - Weight increased [Unknown]
